FAERS Safety Report 25110829 (Version 1)
Quarter: 2025Q1

REPORT INFORMATION
  Report Type: Spontaneous
  Country: CG (occurrence: CG)
  Receive Date: 20250324
  Receipt Date: 20250324
  Transmission Date: 20250409
  Serious: Yes (Other)
  Sender: UNICHEM
  Company Number: CG-UNICHEM LABORATORIES LIMITED-UNI-2025-CG-001489

PATIENT

DRUGS (9)
  1. TRAMADOL [Suspect]
     Active Substance: TRAMADOL
     Indication: Ebola disease
     Route: 065
  2. METRONIDAZOLE [Suspect]
     Active Substance: METRONIDAZOLE
     Indication: Ebola disease
     Route: 065
  3. CEFTRIAXONE [Suspect]
     Active Substance: CEFTRIAXONE
     Indication: Ebola disease
     Route: 065
  4. GENTAMICIN [Suspect]
     Active Substance: GENTAMICIN
     Indication: Ebola disease
     Route: 065
  5. ARTESUNATE [Suspect]
     Active Substance: ARTESUNATE
     Indication: Ebola disease
     Route: 065
  6. PAPAVERINE [Suspect]
     Active Substance: PAPAVERINE
     Indication: Ebola disease
     Route: 065
  7. ALBENDAZOLE [Suspect]
     Active Substance: ALBENDAZOLE
     Indication: Ebola disease
     Route: 065
  8. ACETAMINOPHEN [Suspect]
     Active Substance: ACETAMINOPHEN
     Indication: Ebola disease
     Route: 065
  9. UNSPECIFIED INGREDIENT [Suspect]
     Active Substance: UNSPECIFIED INGREDIENT
     Indication: Ebola disease
     Route: 065

REACTIONS (2)
  - Caesarean section [Unknown]
  - Maternal exposure during pregnancy [Unknown]
